FAERS Safety Report 5474704-6 (Version None)
Quarter: 2007Q3

REPORT INFORMATION
  Report Type: 
  Country: None (occurrence: None)
  Receive Date: 20070927
  Receipt Date: 20070927
  Transmission Date: 20080115
  Serious: Yes (Other)
  Sender: FDA-Public Use
  Company Number: None

PATIENT
  Age: 60 Year
  Sex: Male
  Weight: 98.8842 kg

DRUGS (1)
  1. CHANTIX [Suspect]
     Indication: SMOKING CESSATION THERAPY
     Dosage: 1 MG TABLET 2 TIMES A DAY PO
     Route: 048
     Dates: start: 20070511, end: 20070614

REACTIONS (3)
  - ARTHRALGIA [None]
  - MYALGIA [None]
  - PARAESTHESIA [None]
